FAERS Safety Report 4274947-3 (Version None)
Quarter: 2004Q1

REPORT INFORMATION
  Report Type: 
  Country: None (occurrence: None)
  Receive Date: 20040120
  Receipt Date: 20040107
  Transmission Date: 20041129
  Serious: Yes (Death)
  Sender: FDA-Public Use
  Company Number: 2004S1000071

PATIENT
  Age: 47 Year
  Sex: Male

DRUGS (1)
  1. CLOZAPINE [Suspect]
     Dosage: 100 MG QID, ORAL
     Route: 048
     Dates: start: 20030601

REACTIONS (1)
  - CHRONIC OBSTRUCTIVE AIRWAYS DISEASE [None]
